FAERS Safety Report 6453646-3 (Version None)
Quarter: 2009Q4

REPORT INFORMATION
  Report Type: 
  Country: None (occurrence: None)
  Receive Date: 20091124
  Receipt Date: 20091111
  Transmission Date: 20100525
  Serious: Yes (Other)
  Sender: FDA-Public Use
  Company Number: PHEH2009US14606

PATIENT
  Age: 64 Year
  Sex: Male
  Weight: 83.9 kg

DRUGS (3)
  1. GLEEVEC [Suspect]
     Dosage: UNK
     Dates: start: 20030101
  2. HYDROXYUREA [Concomitant]
  3. CYTARABINE [Concomitant]

REACTIONS (6)
  - ASTHENIA [None]
  - BLOOD COUNT ABNORMAL [None]
  - CHROMOSOMAL MUTATION [None]
  - DRUG INEFFECTIVE [None]
  - GRAFT VERSUS HOST DISEASE [None]
  - TRANSPLANT [None]
